FAERS Safety Report 14974303 (Version 1)
Quarter: 2018Q2

REPORT INFORMATION
  Report Type: Spontaneous
  Country: US (occurrence: US)
  Receive Date: 20180605
  Receipt Date: 20180605
  Transmission Date: 20180711
  Serious: Yes (Other)
  Sender: FDA-Public Use
  Company Number: US-AMGEN-USASP2018073282

PATIENT
  Age: 73 Year
  Sex: Female

DRUGS (1)
  1. PROLIA [Suspect]
     Active Substance: DENOSUMAB
     Indication: OSTEOPOROSIS POSTMENOPAUSAL
     Dosage: 60 MG, Q6MO
     Route: 065

REACTIONS (7)
  - Spinal fracture [Recovering/Resolving]
  - Ear infection [Recovered/Resolved]
  - Bursitis [Not Recovered/Not Resolved]
  - Rash papular [Recovered/Resolved]
  - Injection site swelling [Unknown]
  - Rash pruritic [Not Recovered/Not Resolved]
  - Injection site erythema [Unknown]
